APPROVED DRUG PRODUCT: POTASSIUM CHLORIDE
Active Ingredient: POTASSIUM CHLORIDE
Strength: 10MEQ
Dosage Form/Route: CAPSULE, EXTENDED RELEASE;ORAL
Application: A202128 | Product #001 | TE Code: AB
Applicant: AMNEAL PHARMACEUTICALS
Approved: Feb 22, 2013 | RLD: No | RS: No | Type: RX